FAERS Safety Report 7639164-5 (Version None)
Quarter: 2011Q3

REPORT INFORMATION
  Report Type: 
  Country: None (occurrence: None)
  Receive Date: 20110726
  Receipt Date: 20110726
  Transmission Date: 20111222
  Serious: Yes (Hospitalization)
  Sender: FDA-Public Use
  Company Number: None

PATIENT
  Sex: Male
  Weight: 106.5953 kg

DRUGS (5)
  1. ALLEGRA D 24 HOUR [Concomitant]
  2. FLUTICASONE PROPIONATE [Suspect]
     Indication: RHINITIS ALLERGIC
     Dosage: TWO SPRAYS EACH NARE ONCE DAILY NASAL SPRAY
     Route: 045
     Dates: start: 20110324, end: 20110714
  3. ZYRTEC [Concomitant]
  4. ALLEGRA [Concomitant]
  5. CLARITIN [Concomitant]

REACTIONS (1)
  - DRUG INEFFECTIVE [None]
